FAERS Safety Report 7788904-3 (Version None)
Quarter: 2011Q3

REPORT INFORMATION
  Report Type: 
  Country: None (occurrence: None)
  Receive Date: 20110930
  Receipt Date: 20110927
  Transmission Date: 20111222
  Serious: Yes (Other)
  Sender: FDA-Public Use
  Company Number: US-PFIZER INC-2011231032

PATIENT
  Sex: Female
  Weight: 36.28 kg

DRUGS (3)
  1. COZAAR [Concomitant]
     Indication: HYPERTENSION
     Dosage: 100 MG, DAILY
  2. DILANTIN [Suspect]
     Dosage: 200 MG, ALTERNATE DAY
     Route: 048
     Dates: start: 20100101
  3. DILANTIN [Suspect]
     Indication: POST PROCEDURAL COMPLICATION
     Dosage: 300 MG, ALTERNATE DAY
     Route: 048
     Dates: start: 19820101, end: 20100101

REACTIONS (3)
  - OSTEOPOROSIS [None]
  - FALL [None]
  - FEMUR FRACTURE [None]
